FAERS Safety Report 7725275-2 (Version None)
Quarter: 2011Q3

REPORT INFORMATION
  Report Type: 
  Country: None (occurrence: None)
  Receive Date: 20110902
  Receipt Date: 20110826
  Transmission Date: 20111222
  Serious: Yes (Hospitalization)
  Sender: FDA-Public Use
  Company Number: US-BIOGENIDEC-2011BI032805

PATIENT
  Age: 30 Year
  Sex: Female

DRUGS (1)
  1. AVONEX [Suspect]
     Indication: MULTIPLE SCLEROSIS
     Route: 030
     Dates: start: 20110201

REACTIONS (4)
  - FEMALE STERILISATION [None]
  - CHOLECYSTECTOMY [None]
  - LOOP ELECTROSURGICAL EXCISION PROCEDURE [None]
  - UTERINE LEIOMYOMA [None]
